FAERS Safety Report 16038038 (Version 5)
Quarter: 2019Q3

REPORT INFORMATION
  Report Type: Report from Study
  Country: US (occurrence: US)
  Receive Date: 20190305
  Receipt Date: 20190722
  Transmission Date: 20191004
  Serious: Yes (Hospitalization)
  Sender: FDA-Public Use
  Company Number: US-ACTELION-A-NJ2019-186731

PATIENT
  Sex: Female
  Weight: 92.52 kg

DRUGS (4)
  1. AMLODIPINE [Concomitant]
     Active Substance: AMLODIPINE BESYLATE
  2. TADALAFIL. [Concomitant]
     Active Substance: TADALAFIL
  3. UPTRAVI [Suspect]
     Active Substance: SELEXIPAG
     Dosage: 200 MCG, BID
     Route: 048
  4. UPTRAVI [Suspect]
     Active Substance: SELEXIPAG
     Indication: PULMONARY ARTERIAL HYPERTENSION
     Dosage: 400 MCG, BID
     Route: 048

REACTIONS (9)
  - Headache [Unknown]
  - Diuretic therapy [Unknown]
  - Weight increased [Unknown]
  - Lung infection [Unknown]
  - Rash generalised [Unknown]
  - Peripheral swelling [Unknown]
  - Pain [Unknown]
  - Fluid overload [Unknown]
  - Pulmonary hypertension [Unknown]
